FAERS Safety Report 11676491 (Version 1)
Quarter: 2015Q4

REPORT INFORMATION
  Report Type: Spontaneous
  Country: US (occurrence: US)
  Receive Date: 20151027
  Receipt Date: 20151027
  Transmission Date: 20160304
  Serious: No
  Sender: FDA-Public Use
  Company Number: US-ELI_LILLY_AND_COMPANY-US201008002502

PATIENT
  Sex: Female

DRUGS (2)
  1. FORTEO [Suspect]
     Active Substance: TERIPARATIDE
     Indication: OSTEOPOROSIS
     Dosage: 20 UG, DAILY (1/D)
     Dates: start: 20100719, end: 20100903
  2. FORTEO [Suspect]
     Active Substance: TERIPARATIDE
     Dosage: 20 UG, DAILY (1/D)
     Dates: start: 20100719, end: 20100903

REACTIONS (10)
  - Sluggishness [Recovered/Resolved]
  - Influenza like illness [Recovered/Resolved]
  - Muscle fatigue [Unknown]
  - Constipation [Unknown]
  - Arthritis [Unknown]
  - Nausea [Unknown]
  - Sinus disorder [Unknown]
  - Fatigue [Recovering/Resolving]
  - Pain [Recovered/Resolved]
  - Vomiting [Recovered/Resolved]
